FAERS Safety Report 9739178 (Version 1)
Quarter: 2013Q4

REPORT INFORMATION
  Report Type: Spontaneous
  Country: GB (occurrence: GB)
  Receive Date: 20131209
  Receipt Date: 20131209
  Transmission Date: 20140711
  Serious: Yes (Hospitalization, Other)
  Sender: FDA-Public Use
  Company Number: GB-TARO PHARMACEUTICALS U.S.A., INC-2013SUN05103

PATIENT
  Age: 20 Year
  Sex: Male

DRUGS (2)
  1. CARBAMAZEPINE [Suspect]
     Indication: PRODUCT USED FOR UNKNOWN INDICATION
     Dosage: UNK
     Route: 048
  2. LEVETIRACETAM [Suspect]
     Indication: PRODUCT USED FOR UNKNOWN INDICATION
     Route: 048

REACTIONS (11)
  - Bundle branch block right [Unknown]
  - Ventricular fibrillation [Unknown]
  - Cardiac arrest [Unknown]
  - Grand mal convulsion [Recovering/Resolving]
  - Respiratory depression [Unknown]
  - Coma [Recovering/Resolving]
  - Hypotension [Unknown]
  - Agitation [Unknown]
  - Confusional state [Unknown]
  - Dysarthria [Recovering/Resolving]
  - Intentional overdose [Unknown]
